FAERS Safety Report 10478566 (Version 1)
Quarter: 2014Q3

REPORT INFORMATION
  Report Type: Spontaneous
  Country: CN (occurrence: CN)
  Receive Date: 20140926
  Receipt Date: 20140926
  Transmission Date: 20150326
  Serious: Yes (Hospitalization)
  Sender: FDA-Public Use
  Company Number: CN-JNJFOC-20140913625

PATIENT
  Age: 60 Year
  Sex: Female

DRUGS (2)
  1. RISPERDAL [Suspect]
     Active Substance: RISPERIDONE
     Indication: HYPOMANIA
     Route: 048
     Dates: start: 20130805, end: 20130819
  2. MAGNESIUM VALPROATE [Suspect]
     Active Substance: VALPROATE MAGNESIUM
     Indication: HYPOMANIA
     Route: 065
     Dates: start: 20130805, end: 20140819

REACTIONS (3)
  - Erythema multiforme [Not Recovered/Not Resolved]
  - Staphylococcus test positive [None]
  - Sepsis [Not Recovered/Not Resolved]

NARRATIVE: CASE EVENT DATE: 20130818
